FAERS Safety Report 9608139 (Version 2)
Quarter: 2013Q4

REPORT INFORMATION
  Report Type: Spontaneous
  Country: US (occurrence: US)
  Receive Date: 20131009
  Receipt Date: 20131120
  Transmission Date: 20140711
  Serious: No
  Sender: FDA-Public Use
  Company Number: US-PFIZER INC-2013287933

PATIENT
  Age: 14 Year
  Sex: Female
  Weight: 39.9 kg

DRUGS (1)
  1. GENOTROPIN [Suspect]
     Indication: GROWTH HORMONE DEFICIENCY
     Dosage: 2.2 MG, 1X/DAY (2.2 MG 7 DAYS/WK)
     Route: 058
     Dates: start: 20120501

REACTIONS (1)
  - Injection site haemorrhage [Unknown]
